FAERS Safety Report 24295474 (Version 2)
Quarter: 2024Q3

REPORT INFORMATION
  Report Type: Report from Study
  Country: US (occurrence: US)
  Receive Date: 20240908
  Receipt Date: 20240915
  Transmission Date: 20241017
  Serious: Yes (Other)
  Sender: ROCHE
  Company Number: US-ROCHE-10000075330

PATIENT
  Age: 81 Year
  Sex: Male

DRUGS (1)
  1. OCREVUS [Suspect]
     Active Substance: OCRELIZUMAB
     Indication: Multiple sclerosis
     Dosage: DATE OF TREATMENT = 29/AUG/2024, 13/MAR/2024, 28/FEB/2024
     Route: 065
     Dates: start: 20240228

REACTIONS (1)
  - Multiple sclerosis [Unknown]
